FAERS Safety Report 17551659 (Version 2)
Quarter: 2020Q1

REPORT INFORMATION
  Report Type: Spontaneous
  Country: FR (occurrence: FR)
  Receive Date: 20200317
  Receipt Date: 20200330
  Transmission Date: 20200409
  Serious: Yes (Hospitalization, Other)
  Sender: FDA-Public Use
  Company Number: FR-009507513-2003FRA006197

PATIENT
  Age: 78 Year
  Sex: Male

DRUGS (13)
  1. JANUVIA [Suspect]
     Active Substance: SITAGLIPTIN PHOSPHATE
     Dosage: 25 MG, QD (50 MG CUT IN HALF)
     Route: 048
  2. ELIQUIS [Concomitant]
     Active Substance: APIXABAN
     Dosage: UNK
  3. DOLIPRANE [Concomitant]
     Active Substance: ACETAMINOPHEN
     Dosage: UNK
  4. BISOCE [Concomitant]
     Active Substance: BISOPROLOL
     Dosage: UNK
  5. LEVOTHYROX [Concomitant]
     Active Substance: LEVOTHYROXINE
     Dosage: UNK
  6. FUROSEMIDE. [Concomitant]
     Active Substance: FUROSEMIDE
     Dosage: UNK
  7. KARDEGIC [Concomitant]
     Active Substance: ASPIRIN DL-LYSINE
     Dosage: UNK
  8. ATORVASTATIN [Concomitant]
     Active Substance: ATORVASTATIN
     Dosage: UNK
  9. ESOMEPRAZOLE. [Concomitant]
     Active Substance: ESOMEPRAZOLE MAGNESIUM
     Dosage: UNK
  10. JANUVIA [Suspect]
     Active Substance: SITAGLIPTIN PHOSPHATE
     Dosage: 25 MILLIGRAM, UNK (100 MG SPLIT IN 4)
     Route: 048
     Dates: start: 20200311
  11. JANUVIA [Suspect]
     Active Substance: SITAGLIPTIN PHOSPHATE
     Dosage: 100 MILLIGRAM, UNK
     Route: 048
  12. XATRAL LP [Concomitant]
     Active Substance: ALFUZOSIN
     Dosage: UNK
  13. APIDRA [Concomitant]
     Active Substance: INSULIN GLULISINE
     Dosage: UNK, PRN

REACTIONS (6)
  - Off label use [Unknown]
  - Wrong technique in product usage process [Unknown]
  - Herpes simplex meningitis [Unknown]
  - Incorrect dose administered [Unknown]
  - Circumstance or information capable of leading to medication error [Unknown]
  - Product prescribing issue [Unknown]

NARRATIVE: CASE EVENT DATE: 202003
